FAERS Safety Report 22760988 (Version 4)
Quarter: 2023Q4

REPORT INFORMATION
  Report Type: Report from Study
  Country: US (occurrence: US)
  Receive Date: 20230728
  Receipt Date: 20231027
  Transmission Date: 20240109
  Serious: Yes (Other)
  Sender: FDA-Public Use
  Company Number: US-ABBVIE-5344926

PATIENT
  Sex: Female

DRUGS (1)
  1. RINVOQ [Suspect]
     Active Substance: UPADACITINIB
     Indication: Rheumatoid arthritis
     Dosage: STRENGTH: 15 MG
     Route: 048
     Dates: start: 202307, end: 20230722

REACTIONS (9)
  - Dizziness [Recovered/Resolved]
  - Oesophagitis [Unknown]
  - Feeling abnormal [Unknown]
  - Dysphagia [Not Recovered/Not Resolved]
  - Sensation of foreign body [Unknown]
  - Hypophagia [Unknown]
  - Abdominal pain upper [Recovered/Resolved]
  - Malaise [Recovered/Resolved]
  - Nausea [Recovered/Resolved]

NARRATIVE: CASE EVENT DATE: 20230101
